FAERS Safety Report 24350239 (Version 1)
Quarter: 2024Q3

REPORT INFORMATION
  Report Type: Spontaneous
  Country: CN (occurrence: CN)
  Receive Date: 20240923
  Receipt Date: 20240923
  Transmission Date: 20241017
  Serious: No
  Sender: ROCHE
  Company Number: CN-ROCHE-3503644

PATIENT
  Age: 63 Year
  Sex: Female
  Weight: 59.0 kg

DRUGS (3)
  1. HERCEPTIN [Suspect]
     Active Substance: TRASTUZUMAB
     Indication: Breast cancer
     Dosage: MAINTENANCE DOSE 6MG/KG; ONCE PER 21 DAYS. ON 14/JAN/2024 RECEIVED LAST DOSE OF HERCEPTIN.
     Route: 041
     Dates: start: 20230116
  2. HERCEPTIN [Suspect]
     Active Substance: TRASTUZUMAB
     Dosage: MAINTENANCE DOSE 6MG/KG; ONCE PER 21 DAYS. ON 14/JAN/2024 RECEIVED LAST DOSE OF HERCEPTIN.
     Route: 041
  3. SODIUM CHLORIDE [Suspect]
     Active Substance: SODIUM CHLORIDE
     Indication: Breast cancer
     Route: 041
     Dates: start: 20230116

REACTIONS (1)
  - Ejection fraction decreased [Not Recovered/Not Resolved]

NARRATIVE: CASE EVENT DATE: 20240112
